FAERS Safety Report 24120712 (Version 1)
Quarter: 2024Q3

REPORT INFORMATION
  Report Type: Other
  Country: US (occurrence: US)
  Receive Date: 20240722
  Receipt Date: 20240722
  Transmission Date: 20241016
  Serious: Yes (Life-Threatening, Hospitalization, Other)
  Sender: Omnivium Pharmaceuticals
  Company Number: US-Omnivium Pharmaceuticals LLC-2159424

PATIENT
  Age: 40 Year
  Sex: Male

DRUGS (1)
  1. NUMBRINO [Suspect]
     Active Substance: COCAINE HYDROCHLORIDE
     Indication: Product used for unknown indication
     Route: 065

REACTIONS (4)
  - Pulmonary hypertension [Unknown]
  - Toxicity to various agents [Unknown]
  - Vasoconstriction [Unknown]
  - Acute right ventricular failure [Unknown]
